FAERS Safety Report 24446132 (Version 1)
Quarter: 2024Q4

REPORT INFORMATION
  Report Type: Spontaneous
  Country: US (occurrence: US)
  Receive Date: 20241016
  Receipt Date: 20241016
  Transmission Date: 20250114
  Serious: Yes (Other)
  Sender: MYLAN
  Company Number: US-MYLANLABS-2024M1092341

PATIENT
  Age: 65 Year
  Sex: Male

DRUGS (14)
  1. TERBINAFINE [Suspect]
     Active Substance: TERBINAFINE\TERBINAFINE HYDROCHLORIDE
     Indication: Dermatophytosis
     Dosage: 250 MILLIGRAM, QD
     Route: 048
  2. TERBINAFINE [Suspect]
     Active Substance: TERBINAFINE\TERBINAFINE HYDROCHLORIDE
     Indication: Trichophytosis
     Dosage: 250 MILLIGRAM, QD
     Route: 048
  3. FLUCONAZOLE [Suspect]
     Active Substance: FLUCONAZOLE
     Indication: Dermatophytosis
     Dosage: 200 MILLIGRAM, QD
     Route: 048
  4. FLUCONAZOLE [Suspect]
     Active Substance: FLUCONAZOLE
     Indication: Trichophytosis
  5. PREDNISONE [Suspect]
     Active Substance: PREDNISONE
     Indication: Dermatophytosis
     Dosage: 60 MILLIGRAM, QD
     Route: 048
  6. PREDNISONE [Suspect]
     Active Substance: PREDNISONE
     Indication: Trichophytosis
     Dosage: UNK; DOSE TAPER (UNSPECIFIED)
     Route: 048
  7. CLOTRIMAZOLE [Suspect]
     Active Substance: CLOTRIMAZOLE
     Indication: Dermatophytosis
     Dosage: UNK
     Route: 061
  8. CLOTRIMAZOLE [Suspect]
     Active Substance: CLOTRIMAZOLE
     Indication: Trichophytosis
  9. FLUOCINONIDE [Suspect]
     Active Substance: FLUOCINONIDE
     Indication: Dermatophytosis
     Route: 061
  10. FLUOCINONIDE [Suspect]
     Active Substance: FLUOCINONIDE
     Indication: Trichophytosis
  11. CLOBETASOL [Suspect]
     Active Substance: CLOBETASOL
     Indication: Dermatophytosis
     Dosage: UNK
     Route: 061
  12. CLOBETASOL [Suspect]
     Active Substance: CLOBETASOL
     Indication: Trichophytosis
  13. GRISEOFULVIN [Suspect]
     Active Substance: GRISEOFULVIN
     Indication: Dermatophytosis
     Dosage: 500 MILLIGRAM, QD; MICROSIZE
     Route: 048
  14. GRISEOFULVIN [Suspect]
     Active Substance: GRISEOFULVIN
     Indication: Trichophytosis

REACTIONS (2)
  - Multiple-drug resistance [Unknown]
  - Drug ineffective [Unknown]
